FAERS Safety Report 11530203 (Version 2)
Quarter: 2015Q4

REPORT INFORMATION
  Report Type: Report from Study
  Country: CA (occurrence: CA)
  Receive Date: 20150921
  Receipt Date: 20151005
  Transmission Date: 20160304
  Serious: Yes (Death, Hospitalization)
  Sender: FDA-Public Use
  Company Number: PHHY2014CA049913

PATIENT
  Age: 70 Year
  Sex: Female

DRUGS (3)
  1. SANDOSTATIN LAR DEPOT [Suspect]
     Active Substance: OCTREOTIDE ACETATE
     Indication: CARCINOID SYNDROME
     Dosage: 20 MG, QMO
     Route: 030
     Dates: start: 20140321
  2. SANDOSTATIN LAR DEPOT [Suspect]
     Active Substance: OCTREOTIDE ACETATE
     Dosage: 30 MG, TIW
     Route: 030
     Dates: end: 20150821
  3. SANDOSTATIN LAR DEPOT [Suspect]
     Active Substance: OCTREOTIDE ACETATE
     Dosage: 30 MG, QMO
     Route: 030

REACTIONS (31)
  - General physical health deterioration [Unknown]
  - Abdominal pain lower [Recovering/Resolving]
  - Constipation [Unknown]
  - Abdominal pain [Not Recovered/Not Resolved]
  - Somnolence [Unknown]
  - Decreased appetite [Unknown]
  - Flatulence [Unknown]
  - Intestinal obstruction [Recovering/Resolving]
  - Blood pressure systolic increased [Unknown]
  - Dizziness [Recovered/Resolved]
  - Abdominal discomfort [Unknown]
  - Off label use [Unknown]
  - Nausea [Unknown]
  - Weight decreased [Unknown]
  - Vomiting [Unknown]
  - Blister [Unknown]
  - Abdominal pain upper [Recovered/Resolved]
  - Blood pressure systolic decreased [Unknown]
  - Malaise [Unknown]
  - Wound secretion [Unknown]
  - Diarrhoea [Unknown]
  - Malignant neoplasm progression [Unknown]
  - Blood pressure increased [Unknown]
  - Heat oedema [Unknown]
  - Inappropriate schedule of drug administration [Unknown]
  - Death [Fatal]
  - Herpes zoster [Unknown]
  - Oedema peripheral [Unknown]
  - Body temperature decreased [Unknown]
  - Abdominal distension [Unknown]
  - Swelling [Unknown]

NARRATIVE: CASE EVENT DATE: 20140417
